FAERS Safety Report 5415316-X (Version None)
Quarter: 2007Q3

REPORT INFORMATION
  Report Type: 
  Country: None (occurrence: None)
  Receive Date: 20070813
  Receipt Date: 20070731
  Transmission Date: 20080115
  Serious: Yes (Hospitalization)
  Sender: FDA-Public Use
  Company Number: 07H-114-0312968-00

PATIENT
  Age: 47 Year
  Sex: Female
  Weight: 60 kg

DRUGS (13)
  1. VANCOMYCIN HYDROCHLORIDE [Suspect]
     Indication: INFECTION
     Dosage: 1000 MG, TWICE A DAY; 1000 MG, ONCE A DAY
     Dates: end: 20070509
  2. VANCOMYCIN HYDROCHLORIDE [Suspect]
     Indication: INFECTION
     Dosage: 1000 MG, TWICE A DAY; 1000 MG, ONCE A DAY
     Dates: start: 20070507
  3. VFEND [Suspect]
     Indication: ASPERGILLOSIS
     Dosage: 360 MG, ONCE; 240 MG, TWICE; 200 MG, TWICE A DAY
     Dates: end: 20070507
  4. VFEND [Suspect]
     Indication: ASPERGILLOSIS
     Dosage: 360 MG, ONCE; 240 MG, TWICE; 200 MG, TWICE A DAY
     Dates: start: 20070507
  5. VFEND [Suspect]
     Indication: ASPERGILLOSIS
     Dosage: 360 MG, ONCE; 240 MG, TWICE; 200 MG, TWICE A DAY
     Dates: start: 20070507
  6. CIPROFLOXACIN [Suspect]
     Indication: PROPHYLAXIS
     Dosage: 500 MG, TWICE A DAY; 500 MG, ONCE A DAY
     Dates: end: 20070509
  7. CIPROFLOXACIN [Suspect]
     Indication: PROPHYLAXIS
     Dosage: 500 MG, TWICE A DAY; 500 MG, ONCE A DAY
     Dates: start: 20070419
  8. AMIKACIN [Suspect]
     Indication: INFECTION
     Dosage: 500 MG, TWICE A DAY; 500 MG, ONCE A DAY
     Dates: end: 20070511
  9. AMIKACIN [Suspect]
     Indication: INFECTION
     Dosage: 500 MG, TWICE A DAY; 500 MG, ONCE A DAY
     Dates: start: 20070425
  10. CITALOPRAM HYDROBROMIDE [Concomitant]
  11. FLUCONAZOLE [Concomitant]
  12. MORPHINE HCL (MORPHINE HYDROCHLORIDE) [Concomitant]
  13. TAZOCIN (PIP/TAZO) [Concomitant]

REACTIONS (1)
  - RENAL FAILURE ACUTE [None]
